FAERS Safety Report 8673168 (Version 6)
Quarter: 2012Q4

REPORT INFORMATION
  Report Type: 
  Country: US (occurrence: US)
  Receive Date: 20120719
  Receipt Date: 20121228
  Transmission Date: 20130627
  Serious: Yes (Hospitalization, Other)
  Sender: FDA-Public Use
  Company Number: US-BAYER-2012-068143

PATIENT
  Sex: Male

DRUGS (3)
  1. NEXAVAR [Suspect]
     Indication: MALIGNANT HEPATIC NEOPLASM
     Dosage: 400 mg, BID
     Route: 048
     Dates: start: 20120531
  2. NEXAVAR [Suspect]
     Indication: MALIGNANT HEPATIC NEOPLASM
     Dosage: 400 mg, BID
     Dates: start: 20120801
  3. NEXAVAR [Suspect]
     Indication: MALIGNANT HEPATIC NEOPLASM
     Dosage: 400 mg, BID
     Route: 048
     Dates: start: 20120531

REACTIONS (2)
  - Encephalopathy [None]
  - Drug ineffective [None]
